FAERS Safety Report 14029429 (Version 1)
Quarter: 2017Q4

REPORT INFORMATION
  Report Type: Spontaneous
  Country: US (occurrence: US)
  Receive Date: 20171002
  Receipt Date: 20171002
  Transmission Date: 20180321
  Serious: No
  Sender: FDA-Public Use
  Company Number: US-JAZZ-2017-US-011006

PATIENT
  Age: 58 Year
  Sex: Male

DRUGS (3)
  1. XYREM [Suspect]
     Active Substance: SODIUM OXYBATE
     Dosage: DOSE ADJUSTMENTS
     Route: 048
     Dates: start: 201707, end: 201708
  2. XYREM [Suspect]
     Active Substance: SODIUM OXYBATE
     Indication: SOMNOLENCE
     Dosage: 2.25G, BID
     Route: 048
     Dates: start: 201707, end: 201707
  3. XYREM [Suspect]
     Active Substance: SODIUM OXYBATE
     Dosage: 4.5 G, BID
     Route: 048
     Dates: start: 201708

REACTIONS (1)
  - Off label use [Unknown]

NARRATIVE: CASE EVENT DATE: 201707
